FAERS Safety Report 25332832 (Version 1)
Quarter: 2025Q2

REPORT INFORMATION
  Report Type: Spontaneous
  Country: US (occurrence: US)
  Receive Date: 20250519
  Receipt Date: 20250519
  Transmission Date: 20250717
  Serious: No
  Sender: SANOFI AVENTIS
  Company Number: US-SA-2025SA142061

PATIENT
  Sex: Male
  Weight: 73 kg

DRUGS (4)
  1. DUPIXENT [Suspect]
     Active Substance: DUPILUMAB
     Indication: Nasal polyps
     Dosage: 300 MG, QOW
     Route: 058
  2. ROSUVASTATIN CALCIUM [Concomitant]
     Active Substance: ROSUVASTATIN CALCIUM
  3. TRAMADOL HCL [Concomitant]
     Active Substance: TRAMADOL HYDROCHLORIDE
  4. LOVASTATIN [Concomitant]
     Active Substance: LOVASTATIN

REACTIONS (5)
  - Dyspepsia [Unknown]
  - Constipation [Unknown]
  - Decreased appetite [Unknown]
  - Fatigue [Unknown]
  - Abdominal pain upper [Unknown]
